FAERS Safety Report 9001217 (Version 1)
Quarter: 2013Q1

REPORT INFORMATION
  Report Type: Spontaneous
  Country: US (occurrence: None)
  Receive Date: 20130102
  Receipt Date: 20130102
  Transmission Date: 20140127
  Serious: Yes (Hospitalization)
  Sender: FDA-Public Use
  Company Number: None

PATIENT
  Age: 88 Year
  Sex: Male
  Weight: 67.7 kg

DRUGS (2)
  1. CARVEDILOL [Suspect]
     Indication: CARDIAC FAILURE CONGESTIVE
     Dosage: 25 MG PO
     Route: 048
     Dates: start: 20110121, end: 20121221
  2. FUROSEMIDE [Suspect]
     Indication: CARDIAC FAILURE CONGESTIVE
     Dosage: 80 MG BID PO
     Route: 048
     Dates: start: 20090326, end: 20121221

REACTIONS (3)
  - Syncope [None]
  - Bradycardia [None]
  - Hypovolaemia [None]
